FAERS Safety Report 9440219 (Version 1)
Quarter: 2013Q3

REPORT INFORMATION
  Report Type: Report from Study
  Country: FR (occurrence: FR)
  Receive Date: 20130805
  Receipt Date: 20130805
  Transmission Date: 20140515
  Serious: Yes (Hospitalization)
  Sender: FDA-Public Use
  Company Number: PHHO2012FR015630

PATIENT
  Age: 75 Year
  Sex: Female
  Weight: 69 kg

DRUGS (3)
  1. NEORAL [Suspect]
     Indication: RENAL TRANSPLANT
     Dosage: 125 MG, QD
     Route: 002
     Dates: start: 20110319
  2. CORTANCYL [Suspect]
     Indication: RENAL TRANSPLANT
     Dosage: 10 MG, QD
     Route: 002
     Dates: start: 20110327
  3. CELLCEPT [Suspect]
     Indication: RENAL TRANSPLANT
     Dosage: 2 G, QD
     Route: 002
     Dates: start: 20110319

REACTIONS (4)
  - Hypertension [Recovered/Resolved]
  - Diabetes mellitus inadequate control [Recovered/Resolved]
  - Renal artery stenosis [Not Recovered/Not Resolved]
  - Renal failure acute [Not Recovered/Not Resolved]
